FAERS Safety Report 10589791 (Version 1)
Quarter: 2014Q4

REPORT INFORMATION
  Report Type: Spontaneous
  Country: US (occurrence: None)
  Receive Date: 20141117
  Receipt Date: 20141117
  Transmission Date: 20150529
  Serious: No
  Sender: FDA-Public Use
  Company Number: None

PATIENT
  Age: 57 Year
  Sex: Male
  Weight: 140.5 kg

DRUGS (2)
  1. RIBAVIRIN. [Suspect]
     Active Substance: RIBAVIRIN
     Indication: HEPATITIS C
     Route: 048
     Dates: start: 20140728, end: 20140812
  2. PEGYLATED INTERFERON NOS [Suspect]
     Active Substance: PEGINTERFERON ALFA-2A OR PEGINTERFERON ALFA-2B OR PEGINTERFERON BETA-1A OR PEGINTERFERON LAMBDA-1A
     Indication: HEPATITIS C
     Dosage: 220 MCG QWEEK SQ
     Dates: start: 20140728, end: 20140812

REACTIONS (11)
  - Incontinence [None]
  - Chills [None]
  - Pyrexia [None]
  - Disorientation [None]
  - Loss of consciousness [None]
  - Diarrhoea [None]
  - Dyspnoea [None]
  - Confusional state [None]
  - Syncope [None]
  - Wheezing [None]
  - Cough [None]

NARRATIVE: CASE EVENT DATE: 20140814
